FAERS Safety Report 5445767-9 (Version None)
Quarter: 2007Q3

REPORT INFORMATION
  Report Type: 
  Country: None (occurrence: None)
  Receive Date: 20070830
  Receipt Date: 20070817
  Transmission Date: 20080115
  Serious: Yes (Other)
  Sender: FDA-Public Use
  Company Number: CHNY2007GB02920

PATIENT
  Sex: 0

DRUGS (1)
  1. NICOTINE [Suspect]
     Dosage: CHEWED

REACTIONS (1)
  - OPTIC ISCHAEMIC NEUROPATHY [None]
